FAERS Safety Report 5807541-0 (Version None)
Quarter: 2008Q3

REPORT INFORMATION
  Report Type: 
  Country: None (occurrence: None)
  Receive Date: 20080711
  Receipt Date: 20080624
  Transmission Date: 20090109
  Serious: Yes (Death)
  Sender: FDA-Public Use
  Company Number: PHHY2008DE12075

PATIENT
  Sex: Male

DRUGS (3)
  1. ZOMETA [Suspect]
     Dosage: 4 MG
     Route: 042
     Dates: start: 20031212
  2. CASODEX [Concomitant]
     Dosage: UNK
     Dates: start: 20041025
  3. CALCIMAGON-D3 [Concomitant]
     Dosage: UNK
     Dates: start: 20031208

REACTIONS (1)
  - DEATH [None]
